FAERS Safety Report 9015329 (Version 3)
Quarter: 2013Q1

REPORT INFORMATION
  Report Type: Report from Study
  Country: JP (occurrence: JP)
  Receive Date: 20130116
  Receipt Date: 20130320
  Transmission Date: 20140127
  Serious: Yes (Hospitalization)
  Sender: FDA-Public Use
  Company Number: JP-009507513-1102USA00607

PATIENT
  Age: 84 Year
  Sex: Female
  Weight: 35 kg

DRUGS (11)
  1. JANUVIA TABLETS 50MG [Suspect]
     Indication: TYPE 2 DIABETES MELLITUS
     Dosage: 50 MG, QD
     Route: 048
     Dates: start: 20110113, end: 20110121
  2. GASMOTIN [Concomitant]
     Indication: GASTRITIS
     Dosage: 5 MG, TID
     Route: 048
     Dates: start: 20090625, end: 20110121
  3. AMLODIPINE BESYLATE [Concomitant]
     Dosage: DAILY DOSAGE UNKNOWN, FORMULATION: POR
     Route: 048
  4. BLOPRESS [Concomitant]
     Indication: HYPERTENSION
     Dosage: 4 MG, QD
     Route: 048
     Dates: start: 20090625, end: 20110121
  5. GASCON [Concomitant]
     Indication: GASTRITIS
     Dosage: 40 MG, TID
     Route: 048
     Dates: start: 20090625, end: 20110121
  6. MIYA-BM [Concomitant]
     Indication: DYSCHEZIA
     Dosage: 20 MG, TID
     Route: 048
     Dates: start: 20090625, end: 20110121
  7. MIYA-BM [Concomitant]
     Indication: ABDOMINAL DISTENSION
  8. FLUITRAN [Concomitant]
     Indication: HYPERTENSION
     Dosage: 1 MG, QD
     Route: 048
     Dates: start: 20101110, end: 20110121
  9. NORVASC [Concomitant]
     Indication: HYPERTENSION
     Dosage: 2.5 MG, QD
     Route: 048
     Dates: start: 20090514, end: 20110121
  10. MAGLAX [Concomitant]
     Indication: DYSCHEZIA
     Dosage: 500 MG, TID
     Route: 048
     Dates: start: 20100908, end: 20110121
  11. PARIET [Concomitant]
     Indication: GASTROOESOPHAGEAL REFLUX DISEASE
     Dosage: 10 MG, QD
     Route: 048
     Dates: start: 20110302

REACTIONS (3)
  - Drug-induced liver injury [Recovered/Resolved]
  - Vomiting [Recovered/Resolved]
  - Drug ineffective [Unknown]
